FAERS Safety Report 6612544-2 (Version None)
Quarter: 2010Q1

REPORT INFORMATION
  Report Type: 
  Country: None (occurrence: None)
  Receive Date: 20100303
  Receipt Date: 20100225
  Transmission Date: 20100710
  Serious: Yes (Death, Other)
  Sender: FDA-Public Use
  Company Number: JP-SANOFI-AVENTIS-2010SA005182

PATIENT
  Age: 79 Year
  Sex: Male

DRUGS (9)
  1. ELPLAT [Suspect]
     Indication: LARGE INTESTINE CARCINOMA
     Route: 041
     Dates: start: 20090618, end: 20090618
  2. ELPLAT [Suspect]
     Route: 041
     Dates: start: 20100108, end: 20100108
  3. CALCIUM LEVOFOLINATE [Suspect]
     Indication: LARGE INTESTINE CARCINOMA
     Route: 041
     Dates: start: 20090618, end: 20090618
  4. CALCIUM LEVOFOLINATE [Suspect]
     Route: 041
     Dates: start: 20100108, end: 20100108
  5. 5-FU [Suspect]
     Indication: LARGE INTESTINE CARCINOMA
     Route: 040
     Dates: start: 20090618, end: 20090618
  6. 5-FU [Suspect]
     Route: 041
     Dates: start: 20090618, end: 20090619
  7. 5-FU [Suspect]
     Route: 040
     Dates: start: 20100108, end: 20100108
  8. 5-FU [Suspect]
     Route: 041
     Dates: start: 20100108, end: 20100109
  9. GOSHAJINKIGAN [Suspect]
     Indication: LARGE INTESTINE CARCINOMA
     Route: 048
     Dates: start: 20090618, end: 20100119

REACTIONS (2)
  - CEREBRAL INFARCTION [None]
  - INTERSTITIAL LUNG DISEASE [None]
